FAERS Safety Report 10047051 (Version 1)
Quarter: 2014Q1

REPORT INFORMATION
  Report Type: Spontaneous
  Country: US (occurrence: US)
  Receive Date: 20140331
  Receipt Date: 20140331
  Transmission Date: 20141002
  Serious: No
  Sender: FDA-Public Use
  Company Number: US-MYLANLABS-2013S1003582

PATIENT
  Age: 86 Year
  Sex: Female
  Weight: 80.29 kg

DRUGS (4)
  1. FENTANYL TRANSDERMAL SYSTEM [Suspect]
     Indication: BACK PAIN
     Dosage: Q 72H
     Route: 062
     Dates: start: 20130208
  2. HCTZ [Concomitant]
     Indication: BLOOD PRESSURE INCREASED
     Dosage: YEARS
     Route: 048
  3. ACEBUTOLOL [Concomitant]
     Dosage: YEARS
  4. LISINOPRIL [Concomitant]
     Indication: BLOOD PRESSURE INCREASED
     Dosage: YEARS

REACTIONS (2)
  - Weight increased [Not Recovered/Not Resolved]
  - Dyspnoea [Not Recovered/Not Resolved]
